FAERS Safety Report 18589642 (Version 2)
Quarter: 2020Q4

REPORT INFORMATION
  Report Type: Spontaneous
  Country: US (occurrence: US)
  Receive Date: 20201208
  Receipt Date: 20201221
  Transmission Date: 20210114
  Serious: No
  Sender: FDA-Public Use
  Company Number: US-GW PHARMA-202012USGW04229

PATIENT

DRUGS (9)
  1. EPIDIOLEX [Suspect]
     Active Substance: CANNABIDIOL
     Dosage: 160 MILLIGRAM, BID
     Route: 048
     Dates: start: 2020
  2. EPIDIOLEX [Suspect]
     Active Substance: CANNABIDIOL
     Indication: LENNOX-GASTAUT SYNDROME
     Dosage: 80 MILLIGRAM, BID
     Route: 048
     Dates: start: 202011, end: 2020
  3. TOPIRAMATE. [Suspect]
     Active Substance: TOPIRAMATE
     Dosage: DOSE INCREASED
     Route: 065
  4. EPIDIOLEX [Suspect]
     Active Substance: CANNABIDIOL
     Dosage: 80 MILLIGRAM, BID (ANOTHER BATCH NUMBER)
     Route: 048
     Dates: start: 202011, end: 2020
  5. TOPIRAMATE. [Suspect]
     Active Substance: TOPIRAMATE
     Indication: PRODUCT USED FOR UNKNOWN INDICATION
     Dosage: UNK
     Route: 065
  6. EPIDIOLEX [Suspect]
     Active Substance: CANNABIDIOL
     Dosage: 160 MILLIGRAM, BID (ANOTHER BATCH NUMBER)
     Route: 048
     Dates: start: 2020
  7. VIMPAT [Concomitant]
     Active Substance: LACOSAMIDE
     Indication: PRODUCT USED FOR UNKNOWN INDICATION
     Dosage: UNK
     Route: 065
  8. CLOBAZAM. [Concomitant]
     Active Substance: CLOBAZAM
     Indication: PRODUCT USED FOR UNKNOWN INDICATION
     Dosage: UNK
     Route: 065
  9. KEPPRA [Concomitant]
     Active Substance: LEVETIRACETAM
     Indication: PRODUCT USED FOR UNKNOWN INDICATION
     Dosage: UNK
     Route: 065

REACTIONS (3)
  - Constipation [Recovering/Resolving]
  - Fatigue [Recovering/Resolving]
  - Somnolence [Recovering/Resolving]

NARRATIVE: CASE EVENT DATE: 20201116
